FAERS Safety Report 4719187-6 (Version None)
Quarter: 2005Q3

REPORT INFORMATION
  Report Type: 
  Country: None (occurrence: None)
  Receive Date: 20050720
  Receipt Date: 20050601
  Transmission Date: 20060218
  Serious: Yes (Other)
  Sender: FDA-Public Use
  Company Number: S05-CAN-02438-01

PATIENT
  Age: 82 Year
  Sex: Male

DRUGS (8)
  1. CELEXA [Suspect]
     Dosage: 10 MG QD
  2. EC-ASA (ACETYLSALICYLIC ACID ENTERIC COATED) [Concomitant]
  3. ALTACE [Concomitant]
  4. CALCIUM GLUCONATE [Concomitant]
  5. LORAZEPAM [Concomitant]
  6. LUPRON [Concomitant]
  7. RABEPRAZOLE SODIUM [Concomitant]
  8. VITAMIN D [Concomitant]
     Dosage: 10 MG QD

REACTIONS (5)
  - ASTHENIA [None]
  - CONSTIPATION [None]
  - DIARRHOEA [None]
  - FATIGUE [None]
  - URINE FLOW DECREASED [None]
